FAERS Safety Report 10211361 (Version 1)
Quarter: 2014Q2

REPORT INFORMATION
  Report Type: Spontaneous
  Country: US (occurrence: None)
  Receive Date: 20140530
  Receipt Date: 20140530
  Transmission Date: 20141212
  Serious: Yes (Other)
  Sender: FDA-Public Use
  Company Number: None

PATIENT
  Age: 33 Year
  Sex: Male
  Weight: 75.75 kg

DRUGS (1)
  1. MORPHINE [Suspect]
     Indication: ANALGESIC THERAPY
     Route: 030
     Dates: start: 20140519

REACTIONS (1)
  - Injection site rash [None]
